FAERS Safety Report 4953364-4 (Version None)
Quarter: 2006Q1

REPORT INFORMATION
  Report Type: 
  Country: None (occurrence: None)
  Receive Date: 20060127
  Receipt Date: 20050316
  Transmission Date: 20060701
  Serious: Yes (Other)
  Sender: FDA-Public Use
  Company Number: 05-03-0424

PATIENT
  Age: 26 Year
  Sex: Male
  Weight: 74.3899 kg

DRUGS (1)
  1. CLOZAPINE [Suspect]
     Indication: SCHIZOAFFECTIVE DISORDER
     Dosage: 300-500MG QD, ORAL
     Route: 048
     Dates: start: 20041220, end: 20050301

REACTIONS (1)
  - AGRANULOCYTOSIS [None]
